FAERS Safety Report 10915868 (Version 1)
Quarter: 2015Q1

REPORT INFORMATION
  Report Type: Spontaneous
  Country: US (occurrence: None)
  Receive Date: 20150311
  Receipt Date: 20150311
  Transmission Date: 20150721
  Serious: Yes (Hospitalization, Disabling, Other)
  Sender: FDA-Public Use
  Company Number: None

PATIENT
  Age: 50 Year
  Sex: Female
  Weight: 50.8 kg

DRUGS (8)
  1. GILENYA [Suspect]
     Active Substance: FINGOLIMOD HYDROCHLORIDE
     Indication: RELAPSING-REMITTING MULTIPLE SCLEROSIS
     Route: 048
     Dates: start: 201404, end: 20140725
  2. IRON [Concomitant]
     Active Substance: IRON
  3. HCTZ [Concomitant]
     Active Substance: HYDROCHLOROTHIAZIDE
  4. POTASSIUM [Concomitant]
     Active Substance: POTASSIUM
  5. TUMERIC [Concomitant]
  6. LISINOPRIL. [Concomitant]
     Active Substance: LISINOPRIL
  7. NEURONTIN [Concomitant]
     Active Substance: GABAPENTIN
  8. VITAMIN D [Concomitant]
     Active Substance: CHOLECALCIFEROL

REACTIONS (15)
  - Hepatic enzyme increased [None]
  - Influenza [None]
  - Blood potassium decreased [None]
  - Nausea [None]
  - Loss of consciousness [None]
  - Blood iron decreased [None]
  - Renal injury [None]
  - Anaemia [None]
  - Fatigue [None]
  - Blood electrolytes abnormal [None]
  - Malaise [None]
  - Asthenia [None]
  - Syncope [None]
  - Dysstasia [None]
  - Liver injury [None]

NARRATIVE: CASE EVENT DATE: 20140725
